FAERS Safety Report 5052685-7 (Version None)
Quarter: 2006Q3

REPORT INFORMATION
  Report Type: 
  Country: None (occurrence: None)
  Receive Date: 20060714
  Receipt Date: 20060714
  Transmission Date: 20061208
  Serious: Yes (Hospitalization)
  Sender: FDA-Public Use
  Company Number: None

PATIENT
  Age: 80 Year
  Sex: Female
  Weight: 91.8 kg

DRUGS (1)
  1. ZOSYN [Suspect]
     Indication: PNEUMONIA
     Dosage: 3.375 G/IV/X1
     Route: 042
     Dates: start: 20060611

REACTIONS (1)
  - RESPIRATION ABNORMAL [None]
